FAERS Safety Report 5441553-4 (Version None)
Quarter: 2007Q3

REPORT INFORMATION
  Report Type: 
  Country: None (occurrence: None)
  Receive Date: 20070904
  Receipt Date: 20070829
  Transmission Date: 20080115
  Serious: Yes (Death)
  Sender: FDA-Public Use
  Company Number: JP-BRISTOL-MYERS SQUIBB COMPANY-13895321

PATIENT
  Age: 44 Year
  Sex: Female

DRUGS (3)
  1. TAXOL [Suspect]
     Indication: METASTASES TO LIVER
     Route: 041
     Dates: start: 20040513
  2. HERCEPTIN [Concomitant]
     Dates: start: 20040501
  3. TAMOXIFEN CITRATE [Concomitant]
     Route: 048
     Dates: start: 20040501

REACTIONS (1)
  - HEPATIC CIRRHOSIS [None]
